FAERS Safety Report 21893290 (Version 1)
Quarter: 2023Q1

REPORT INFORMATION
  Report Type: Report from Study
  Country: US (occurrence: US)
  Receive Date: 20230121
  Receipt Date: 20230121
  Transmission Date: 20230417
  Serious: Yes (Hospitalization)
  Sender: FDA-Public Use
  Company Number: US-Accord-275469

PATIENT
  Sex: Male
  Weight: 95.30 kg

DRUGS (8)
  1. CLOZAPINE [Suspect]
     Active Substance: CLOZAPINE
     Indication: Bipolar disorder
     Dosage: 50MG, TWICE DAILY
     Route: 048
  2. DEPAKOTE [Concomitant]
     Active Substance: DIVALPROEX SODIUM
     Dosage: 500MG, TWICE DAILY
     Route: 048
  3. KEPPRA [Concomitant]
     Active Substance: LEVETIRACETAM
     Dosage: 500MG, TWICE DAILY
     Route: 048
  4. GABAPENTIN [Concomitant]
     Active Substance: GABAPENTIN
     Dosage: 600MG, THREE TIMES DAILY
     Route: 048
  5. LITHIUM CARBONATE [Concomitant]
     Active Substance: LITHIUM CARBONATE
     Dosage: 900MG EVERY PM AND 300 MG EVERY AM
     Route: 048
  6. ZONEGRAN [Concomitant]
     Active Substance: ZONISAMIDE
     Dosage: 400MG,  NIGHTLY
     Route: 048
  7. HALOPERIDOL [Concomitant]
     Active Substance: HALOPERIDOL
     Dosage: 5MG, EVERY 6 HOURS
     Route: 030
  8. HALOPERIDOL [Concomitant]
     Active Substance: HALOPERIDOL
     Dosage: 5MG,EVERY 6 HOURS
     Route: 048

REACTIONS (1)
  - Agitation [Unknown]
